FAERS Safety Report 13159985 (Version 4)
Quarter: 2017Q2

REPORT INFORMATION
  Report Type: Report from Study
  Country: None (occurrence: FR)
  Receive Date: 20170127
  Receipt Date: 20170614
  Transmission Date: 20170830
  Serious: Yes (Hospitalization)
  Sender: FDA-Public Use
  Company Number: FR-ABBVIE-17P-056-1850137-00

PATIENT
  Age: 70 Year
  Sex: Female
  Weight: 58.6 kg

DRUGS (8)
  1. VINCRISTINE [Suspect]
     Active Substance: VINCRISTINE
     Indication: B-CELL LYMPHOMA
     Dosage: DATE OF MOST RECENT DOSE PRIOR TO AE 03 MAY 2016 (2MG)
     Route: 042
     Dates: start: 20160115
  2. VENETOCLAX [Suspect]
     Active Substance: VENETOCLAX
     Indication: B-CELL LYMPHOMA
     Dosage: DATE OF MOST RECENT DOSE PRIOR TO AE ONSET 25 JUN 2016
     Route: 048
     Dates: start: 20160118
  3. DOXORUBICIN [Suspect]
     Active Substance: DOXORUBICIN
     Indication: B-CELL LYMPHOMA
     Dosage: DATE OF MOST RECENT DOSE PRIOR TO ONSET OF AE 03 MAY 2016 (81.5MG)
     Route: 042
     Dates: start: 20160115
  4. PREDNISONE. [Suspect]
     Active Substance: PREDNISONE
     Indication: B-CELL LYMPHOMA
     Dosage: DATE OF MOST RECENT DOSE PRIOR TO AE ONSET 07 MAY 2016. DAILY ON DAYS 1-5 OF 21 DAY CYCLE
     Route: 048
     Dates: start: 20160115
  5. BISOPROLOL [Concomitant]
     Active Substance: BISOPROLOL
     Indication: SUPRAVENTRICULAR TACHYCARDIA
     Dates: start: 20160404
  6. RITUXIMAB [Suspect]
     Active Substance: RITUXIMAB
     Indication: B-CELL LYMPHOMA
     Dosage: DATE OF MOST RECENT DOSE PRIOR TO AE ONSET 15 JUN 2016 (611MG)
     Route: 042
     Dates: start: 20160115
  7. CYCLOPHOSPHAMIDE. [Suspect]
     Active Substance: CYCLOPHOSPHAMIDE
     Indication: B-CELL LYMPHOMA
     Dosage: DATE OF MOST RECENT DOSE PRIOR TO AE 03 MAY 16 (1222MG)
     Route: 042
     Dates: start: 20160115
  8. LYSANXIA [Concomitant]
     Active Substance: PRAZEPAM
     Indication: ANXIETY

REACTIONS (1)
  - Epilepsy [Recovered/Resolved]

NARRATIVE: CASE EVENT DATE: 20161228
